FAERS Safety Report 22219469 (Version 2)
Quarter: 2023Q4

REPORT INFORMATION
  Report Type: Other
  Country: US (occurrence: None)
  Receive Date: 20230417
  Receipt Date: 20231012
  Transmission Date: 20240110
  Serious: No
  Sender: FDA-Public Use
  Company Number: US-ROCHE-3331348

PATIENT
  Age: 24 Year
  Sex: Female

DRUGS (3)
  1. OCREVUS [Suspect]
     Active Substance: OCRELIZUMAB
     Indication: Relapsing multiple sclerosis
     Dosage: MOST RECENT INFUSION 14/SEP/2022. NEXT SCHEDULED INFUSION 15/MARCH/2023.
     Route: 065
     Dates: start: 20200225
  2. BETASERON [Concomitant]
     Active Substance: INTERFERON BETA-1B
  3. TECFIDERA [Concomitant]
     Active Substance: DIMETHYL FUMARATE

REACTIONS (4)
  - Illness [Unknown]
  - Asthenia [Unknown]
  - Influenza [Unknown]
  - Influenza [Unknown]
